FAERS Safety Report 10403480 (Version 1)
Quarter: 2014Q3

REPORT INFORMATION
  Report Type: Spontaneous
  Country: US (occurrence: None)
  Receive Date: 20140821
  Receipt Date: 20140821
  Transmission Date: 20150326
  Serious: Yes (Hospitalization, Other)
  Sender: FDA-Public Use
  Company Number: None

PATIENT
  Age: 44 Year
  Sex: Female
  Weight: 72.58 kg

DRUGS (7)
  1. CALCIUM W/D [Concomitant]
  2. ALOE VERA [Concomitant]
     Active Substance: ALOE VERA LEAF
  3. ALOE VERA JUICE [Concomitant]
  4. CORTISONE CREAM INTENSIVE HEALING [Concomitant]
     Active Substance: HYDROCORTISONE
  5. CARBAMAZEPINE. [Suspect]
     Active Substance: CARBAMAZEPINE
     Indication: BIPOLAR DISORDER
     Dosage: 1-2 A DAY  1 AT NOON, 1 AT 4PM  BY MOUTH
     Route: 048
     Dates: start: 20121220, end: 20130914
  6. MULTIVITAMIN [Concomitant]
     Active Substance: VITAMINS
  7. SYNTHROID [Concomitant]
     Active Substance: LEVOTHYROXINE SODIUM

REACTIONS (3)
  - Hepatic function abnormal [None]
  - Hypersensitivity [None]
  - Drug interaction [None]

NARRATIVE: CASE EVENT DATE: 20130927
